FAERS Safety Report 7669168-8 (Version None)
Quarter: 2011Q3

REPORT INFORMATION
  Report Type: 
  Country: None (occurrence: None)
  Receive Date: 20110808
  Receipt Date: 20110726
  Transmission Date: 20111222
  Serious: Yes (Hospitalization, Other)
  Sender: FDA-Public Use
  Company Number: US-ROCHE-680377

PATIENT
  Sex: Male
  Weight: 96.2 kg

DRUGS (1)
  1. ACCUTANE [Suspect]
     Dosage: 40 GM AT NIGHT AND 20 GM IN THE MORNING
     Route: 048
     Dates: start: 19940101, end: 19940511

REACTIONS (5)
  - OESOPHAGITIS [None]
  - DEPRESSION [None]
  - COLITIS ULCERATIVE [None]
  - INFLAMMATORY BOWEL DISEASE [None]
  - CROHN'S DISEASE [None]
